FAERS Safety Report 6896824-1 (Version None)
Quarter: 2010Q3

REPORT INFORMATION
  Report Type: 
  Country: None (occurrence: None)
  Receive Date: 20100802
  Receipt Date: 20070220
  Transmission Date: 20110219
  Serious: No
  Sender: FDA-Public Use
  Company Number: US-PFIZER INC-2007014860

PATIENT
  Sex: Female
  Weight: 79.4 kg

DRUGS (2)
  1. LYRICA [Suspect]
     Indication: SCIATICA
     Dates: start: 20060901
  2. LIDOCAINE [Concomitant]

REACTIONS (3)
  - HEART RATE IRREGULAR [None]
  - TACHYCARDIA [None]
  - WEIGHT INCREASED [None]
